FAERS Safety Report 15227556 (Version 1)
Quarter: 2018Q3

REPORT INFORMATION
  Report Type: Spontaneous
  Country: JP (occurrence: JP)
  Receive Date: 20180801
  Receipt Date: 20180801
  Transmission Date: 20181010
  Serious: Yes (Death, Life-Threatening, Hospitalization, Other)
  Sender: FDA-Public Use
  Company Number: JP-BRISTOL-MYERS SQUIBB COMPANY-BMS-2017-051102

PATIENT
  Age: 76 Year
  Sex: Male
  Weight: 48 kg

DRUGS (14)
  1. ARTIST [Concomitant]
     Active Substance: CARVEDILOL
     Indication: HEART RATE INCREASED
     Dosage: 5 MG, QD
     Route: 048
     Dates: start: 20170408, end: 20170408
  2. URINORM                            /00227201/ [Concomitant]
     Active Substance: BENZBROMARONE
     Indication: GOUT
     Dosage: 25 MG, BID
     Route: 048
     Dates: start: 1997, end: 20170407
  3. ELIQUIS [Suspect]
     Active Substance: APIXABAN
     Indication: DEEP VEIN THROMBOSIS
     Dosage: 5 MG, QD
     Route: 048
     Dates: start: 20170408, end: 20170410
  4. CARDENALIN [Concomitant]
     Active Substance: DOXAZOSIN MESYLATE
     Indication: HYPERTENSION
     Dosage: 2 MG, QD
     Route: 048
     Dates: start: 1997, end: 20170407
  5. ELIQUIS [Suspect]
     Active Substance: APIXABAN
     Indication: PULMONARY EMBOLISM
     Route: 065
  6. FOLIAMIN [Concomitant]
     Active Substance: FOLIC ACID
     Indication: NORMOCHROMIC ANAEMIA
     Dosage: 5 MG, TID
     Route: 048
     Dates: end: 20170407
  7. BLOPRESS [Concomitant]
     Active Substance: CANDESARTAN CILEXETIL
     Indication: HYPERTENSION
     Dosage: 8 MG, QD
     Route: 048
     Dates: start: 1997, end: 20170407
  8. URALYT                             /06402701/ [Concomitant]
     Active Substance: POTASSIUM CITRATE\TRISODIUM CITRATE DIHYDRATE
     Indication: GOUT
     Dosage: 1 G, QD
     Route: 065
     Dates: start: 1997, end: 20170407
  9. ASPIRIN                            /00002701/ [Concomitant]
     Active Substance: ASPIRIN
     Indication: STRESS CARDIOMYOPATHY
     Dosage: 81 MG, QD
     Route: 065
     Dates: start: 20170407
  10. ARTIST [Concomitant]
     Active Substance: CARVEDILOL
     Indication: EJECTION FRACTION DECREASED
     Route: 065
  11. HYPOCA                             /01301601/ [Concomitant]
     Indication: HYPERTENSION
     Dosage: 15 MG, QD
     Route: 048
     Dates: start: 1997, end: 20170407
  12. LEVOTOMIN                          /00038602/ [Concomitant]
     Active Substance: LEVOMEPROMAZINE
     Indication: INSOMNIA
     Dosage: 10 MG, QD
     Route: 048
     Dates: end: 20170407
  13. MEMARY [Concomitant]
     Active Substance: MEMANTINE HYDROCHLORIDE
     Indication: DEMENTIA WITH LEWY BODIES
     Dosage: 20 MG, QD
     Route: 048
     Dates: end: 20170407
  14. TICLOPIDINE HYDROCHLORIDE. [Concomitant]
     Active Substance: TICLOPIDINE HYDROCHLORIDE
     Indication: CEREBRAL INFARCTION
     Dosage: 200 MG, DAILY
     Route: 065
     Dates: end: 20170407

REACTIONS (1)
  - Cerebral haemorrhage [Fatal]

NARRATIVE: CASE EVENT DATE: 20170425
